FAERS Safety Report 7776979-7 (Version None)
Quarter: 2011Q3

REPORT INFORMATION
  Report Type: 
  Country: None (occurrence: None)
  Receive Date: 20110926
  Receipt Date: 20110921
  Transmission Date: 20111222
  Serious: Yes (Other)
  Sender: FDA-Public Use
  Company Number: US-PFIZER INC-2011225056

PATIENT
  Sex: Female
  Weight: 58.957 kg

DRUGS (1)
  1. PREPARATION H [Suspect]
     Indication: CONSTIPATION
     Dosage: UNK, 3X/DAY
     Dates: start: 20110917, end: 20110920

REACTIONS (4)
  - MALAISE [None]
  - EMPHYSEMA [None]
  - CHEST PAIN [None]
  - DYSPNOEA [None]
